FAERS Safety Report 18504205 (Version 2)
Quarter: 2020Q4

REPORT INFORMATION
  Report Type: Spontaneous
  Country: US (occurrence: US)
  Receive Date: 20201113
  Receipt Date: 20201118
  Transmission Date: 20210114
  Serious: No
  Sender: FDA-Public Use
  Company Number: US-FRESENIUS KABI-FK202012078

PATIENT
  Age: 70 Year
  Sex: Female
  Weight: 72.6 kg

DRUGS (2)
  1. HEPARIN SODIUM INJECTION, USP [Suspect]
     Active Substance: HEPARIN SODIUM
     Route: 042
     Dates: start: 20201110, end: 20201110
  2. HEPARIN SODIUM INJECTION, USP [Suspect]
     Active Substance: HEPARIN SODIUM
     Indication: ANTICOAGULANT THERAPY
     Route: 042
     Dates: start: 20201110, end: 20201110

REACTIONS (1)
  - Therapeutic product effect decreased [Unknown]
